APPROVED DRUG PRODUCT: DEXTROAMPHETAMINE SULFATE
Active Ingredient: DEXTROAMPHETAMINE SULFATE
Strength: 15MG
Dosage Form/Route: CAPSULE, EXTENDED RELEASE;ORAL
Application: A203901 | Product #003 | TE Code: AB
Applicant: ACTAVIS ELIZABETH LLC
Approved: Nov 30, 2012 | RLD: No | RS: No | Type: RX